FAERS Safety Report 5036665-3 (Version None)
Quarter: 2006Q2

REPORT INFORMATION
  Report Type: 
  Country: None (occurrence: None)
  Receive Date: 20060628
  Receipt Date: 20060607
  Transmission Date: 20061013
  Serious: Yes (Hospitalization, Other)
  Sender: FDA-Public Use
  Company Number: PHBS2006JP08737

PATIENT
  Age: 84 Year
  Sex: Female

DRUGS (4)
  1. ASPIRIN [Concomitant]
     Dosage: 100 MG, UNK
     Route: 048
     Dates: start: 20040426
  2. GASTER [Concomitant]
     Dosage: 40 MG, UNK
     Route: 048
     Dates: start: 20021201
  3. SEPAMIT [Concomitant]
     Dosage: 10 MG, UNK
     Route: 048
     Dates: start: 20021201
  4. DIOVAN [Suspect]
     Indication: HYPERTENSION
     Dosage: 80 MG/DAY
     Route: 048
     Dates: start: 20060426

REACTIONS (5)
  - CEREBRAL INFARCTION [None]
  - FALL [None]
  - PARALYSIS [None]
  - SPEECH DISORDER [None]
  - SYNCOPE [None]
